FAERS Safety Report 7018400-2 (Version None)
Quarter: 2010Q3

REPORT INFORMATION
  Report Type: 
  Country: None (occurrence: None)
  Receive Date: 20100928
  Receipt Date: 20100920
  Transmission Date: 20110219
  Serious: Yes (Hospitalization)
  Sender: FDA-Public Use
  Company Number: PHHY2010DE62599

PATIENT
  Age: 45 Year
  Sex: Male

DRUGS (2)
  1. RITALIN [Suspect]
     Indication: ATTENTION DEFICIT/HYPERACTIVITY DISORDER
     Dosage: 10 OR 20 MG PER DAY
  2. CONCERTA [Suspect]
     Dosage: 54 MG PER DAY

REACTIONS (4)
  - HYPERACUSIS [None]
  - ILLUSION [None]
  - PARANOIA [None]
  - SLEEP DISORDER [None]
